FAERS Safety Report 21915544 (Version 2)
Quarter: 2023Q1

REPORT INFORMATION
  Report Type: Spontaneous
  Country: SA (occurrence: SA)
  Receive Date: 20230126
  Receipt Date: 20230127
  Transmission Date: 20230417
  Serious: Yes (Other)
  Sender: FDA-Public Use
  Company Number: SA-002147023-NVSC2022SA291156

PATIENT
  Sex: Female

DRUGS (2)
  1. KISQALI [Suspect]
     Active Substance: RIBOCICLIB
     Indication: Breast cancer metastatic
     Dosage: UNK
     Route: 065
     Dates: start: 202210, end: 202212
  2. FEMARA [Suspect]
     Active Substance: LETROZOLE
     Indication: Breast cancer metastatic
     Dosage: UNK
     Route: 065
     Dates: start: 202210

REACTIONS (5)
  - Alopecia [Unknown]
  - Mental disorder [Unknown]
  - Social avoidant behaviour [Unknown]
  - Nail disorder [Unknown]
  - Product availability issue [Unknown]

NARRATIVE: CASE EVENT DATE: 20221201
